FAERS Safety Report 21396984 (Version 1)
Quarter: 2022Q3

REPORT INFORMATION
  Report Type: Spontaneous
  Country: US (occurrence: US)
  Receive Date: 20220930
  Receipt Date: 20220930
  Transmission Date: 20221027
  Serious: No
  Sender: FDA-Public Use
  Company Number: US-PFIZER INC-PV202200044240

PATIENT
  Age: 52 Year
  Sex: Female

DRUGS (1)
  1. XELJANZ XR [Suspect]
     Active Substance: TOFACITINIB CITRATE
     Indication: Rheumatoid arthritis
     Dosage: 11 MG, 1X/DAY
     Route: 048
     Dates: start: 2022, end: 20220828

REACTIONS (10)
  - Intentional dose omission [Unknown]
  - Drug ineffective [Unknown]
  - COVID-19 [Unknown]
  - Pain [Unknown]
  - Back pain [Unknown]
  - Mobility decreased [Unknown]
  - Depressed mood [Unknown]
  - Discouragement [Unknown]
  - Condition aggravated [Unknown]
  - Illness [Unknown]

NARRATIVE: CASE EVENT DATE: 20220101
